FAERS Safety Report 9429385 (Version 1)
Quarter: 2013Q3

REPORT INFORMATION
  Report Type: Spontaneous
  Country: US (occurrence: US)
  Receive Date: 20130730
  Receipt Date: 20130730
  Transmission Date: 20140515
  Serious: No
  Sender: FDA-Public Use
  Company Number: US-ABBOTT-13P-163-1058776-00

PATIENT
  Sex: Male
  Weight: 118.49 kg

DRUGS (17)
  1. NIASPAN (COATED) [Suspect]
     Indication: HIGH DENSITY LIPOPROTEIN DECREASED
     Dates: start: 2011
  2. NIASPAN (COATED) [Suspect]
     Indication: BLOOD CHOLESTEROL INCREASED
  3. NIASPAN (COATED) [Suspect]
     Indication: HIGH DENSITY LIPOPROTEIN DECREASED
     Dates: start: 2010, end: 2011
  4. NIASPAN (COATED) [Suspect]
     Indication: BLOOD CHOLESTEROL INCREASED
  5. TRILIPIX [Concomitant]
     Indication: BLOOD TRIGLYCERIDES INCREASED
  6. CRESTOR [Concomitant]
     Indication: BLOOD CHOLESTEROL INCREASED
  7. PROZAC [Concomitant]
     Indication: DEPRESSION
  8. PROPANOLOL [Concomitant]
     Indication: HYPERTENSION
  9. PROPANOLOL [Concomitant]
     Indication: MIGRAINE PROPHYLAXIS
  10. LISINOPRIL [Concomitant]
     Indication: HYPERTENSION
  11. HYDROCHLOROTHIAZIDE [Concomitant]
     Indication: HYPERTENSION
  12. DEXILANT [Concomitant]
     Indication: GASTROOESOPHAGEAL REFLUX DISEASE
  13. WELLBUTRIN [Concomitant]
     Indication: DEPRESSION
  14. KLONOPIN [Concomitant]
     Indication: ANXIETY
  15. MAXALT [Concomitant]
     Indication: MIGRAINE
  16. CENTRUM SILVER [Concomitant]
     Indication: VITAMIN SUPPLEMENTATION
  17. GLIPIZIDE [Concomitant]
     Indication: DIABETES MELLITUS

REACTIONS (4)
  - Renal impairment [Not Recovered/Not Resolved]
  - Tinnitus [Not Recovered/Not Resolved]
  - Flushing [Not Recovered/Not Resolved]
  - Flushing [Not Recovered/Not Resolved]
